FAERS Safety Report 9471467 (Version 2)
Quarter: 2013Q3

REPORT INFORMATION
  Report Type: Spontaneous
  Country: JP (occurrence: JP)
  Receive Date: 20130822
  Receipt Date: 20130822
  Transmission Date: 20140515
  Serious: Yes (Other)
  Sender: FDA-Public Use
  Company Number: JP-PFIZER INC-2013212990

PATIENT
  Age: 77 Year
  Sex: Male

DRUGS (3)
  1. ATORVASTATIN CALCIUM [Suspect]
     Indication: DYSLIPIDAEMIA
     Dosage: UNK
     Route: 048
  2. ETOPOSIDE [Interacting]
     Indication: SMALL CELL LUNG CANCER
     Dosage: UNK
  3. CARBOPLATIN [Concomitant]
     Indication: SMALL CELL LUNG CANCER LIMITED STAGE
     Dosage: UNK

REACTIONS (3)
  - Rhabdomyolysis [Unknown]
  - Renal failure acute [Recovering/Resolving]
  - Drug interaction [Unknown]
